FAERS Safety Report 6105366-2 (Version None)
Quarter: 2009Q1

REPORT INFORMATION
  Report Type: 
  Country: None (occurrence: None)
  Receive Date: 20090306
  Receipt Date: 20090224
  Transmission Date: 20090719
  Serious: Yes (Death)
  Sender: FDA-Public Use
  Company Number: CH-PFIZER INC-2009175329

PATIENT

DRUGS (20)
  1. FRAGMIN [Suspect]
     Indication: THROMBOSIS PROPHYLAXIS
     Dosage: 5000 IU, 1X/DAY
     Route: 058
     Dates: start: 20081118, end: 20081120
  2. IRON POLYMALTOSE [Suspect]
     Indication: IRON DEFICIENCY ANAEMIA
     Dosage: 500 MG, 1X/DAY
     Route: 042
     Dates: start: 20081119, end: 20081119
  3. NEBILET [Suspect]
     Dosage: 5 MG, 1X/DAY
     Route: 048
     Dates: start: 20081119, end: 20081120
  4. ASPIRIN [Suspect]
     Dosage: 100 MG, 1X/DAY
     Route: 048
     Dates: end: 20081104
  5. ASPIRIN [Suspect]
     Dosage: 100 MG, 1X/DAY
     Route: 048
     Dates: start: 20081119, end: 20081120
  6. LASIX [Suspect]
     Route: 048
     Dates: end: 20081118
  7. LASIX [Suspect]
     Dosage: 20 MG, 2X/DAY
     Route: 042
     Dates: start: 20081118, end: 20081119
  8. VALSARTAN [Suspect]
     Dosage: 80 MG, 1X/DAY
     Route: 048
     Dates: end: 20081007
  9. VALSARTAN [Suspect]
     Dosage: 40 MG, 1X/DAY
     Route: 048
     Dates: start: 20081008, end: 20081001
  10. VALSARTAN [Suspect]
     Dosage: 10 MG, 1X/DAY
     Route: 048
     Dates: start: 20081014, end: 20081120
  11. RECORMON [Concomitant]
     Indication: ANAEMIA
     Dosage: 5000 IU, WEEKLY
     Route: 058
     Dates: start: 20081008
  12. RECORMON [Concomitant]
     Dosage: 4000 IU, UNK
     Route: 058
     Dates: start: 20081118, end: 20081120
  13. LORAZEPAM [Concomitant]
     Dosage: 1 MG, 1X/DAY
     Route: 048
     Dates: end: 20081120
  14. DILATREND [Concomitant]
     Dosage: 3.25 MG, 1X/DAY
     Dates: end: 20081104
  15. FLUIMUCIL [Concomitant]
     Dosage: 200 MG, 2X/DAY
     Dates: end: 20081104
  16. PREDNISOLONE [Concomitant]
     Dosage: 5 MG, 1X/DAY
     Dates: end: 20081120
  17. TORASEMIDE [Concomitant]
     Dosage: 10 MG, 1X/DAY
     Route: 048
     Dates: start: 20081120, end: 20081120
  18. FOLIC ACID [Concomitant]
     Dosage: 5 MG, 1X/DAY
     Dates: start: 20081120, end: 20081120
  19. NEXIUM [Concomitant]
     Dosage: 40 MG, 1X/DAY
     Dates: start: 20081120, end: 20081120
  20. LISINOPRIL [Concomitant]
     Dosage: 5 MG, 1X/DAY
     Dates: start: 20081120, end: 20081120

REACTIONS (2)
  - HEPATIC FAILURE [None]
  - HEPATIC NECROSIS [None]
